FAERS Safety Report 10082749 (Version 1)
Quarter: 2014Q2

REPORT INFORMATION
  Report Type: Report from Study
  Country: JP (occurrence: JP)
  Receive Date: 20140416
  Receipt Date: 20140416
  Transmission Date: 20141212
  Serious: Yes (Hospitalization)
  Sender: FDA-Public Use
  Company Number: PHHY2014JP045181

PATIENT
  Age: 8 Year
  Sex: Male
  Weight: 18.3 kg

DRUGS (10)
  1. SOMATROPIN [Suspect]
     Indication: GROWTH HORMONE DEFICIENCY
     Dosage: 3.2 MG, PER WEEK
     Dates: start: 20120822, end: 20120827
  2. SOMATROPIN [Suspect]
     Dosage: 3.2 MG, PER WEEK
     Dates: start: 20121001, end: 20121022
  3. SOMATROPIN [Suspect]
     Dosage: 3.4 MG, PER WEEK
     Dates: start: 20121023, end: 20121101
  4. SOMATROPIN [Suspect]
     Dosage: 3.4 MG, PER WEEK
     Dates: start: 20121110
  5. SOMATROPIN [Suspect]
     Dosage: 3.5 MG, PER WEEK
     Dates: start: 20121127
  6. SOMATROPIN [Suspect]
     Dosage: 3.7 MG, PER WEEK
     Dates: start: 20130404
  7. SOMATROPIN [Suspect]
     Dosage: 3.8 MG, PER WEEK
     Dates: start: 20130830
  8. THYRADIN S [Concomitant]
     Indication: HYPOTHYROIDISM
     Dosage: 20 UG, PER DAY
     Route: 048
     Dates: start: 20100313, end: 20101213
  9. THYRADIN S [Concomitant]
     Dosage: 30 UG, PER DAY
     Route: 048
     Dates: start: 20101214
  10. BIKEN HA [Concomitant]
     Indication: ANTIVIRAL PROPHYLAXIS
     Dosage: 0.5 ML, PER DAY
     Route: 058
     Dates: start: 20121115

REACTIONS (5)
  - Shunt malfunction [Recovering/Resolving]
  - Cerebral ventricle dilatation [Unknown]
  - Headache [Unknown]
  - Altered state of consciousness [Recovering/Resolving]
  - Red blood cells CSF positive [Unknown]
